FAERS Safety Report 12251927 (Version 1)
Quarter: 2016Q2

REPORT INFORMATION
  Report Type: Spontaneous
  Country: US (occurrence: None)
  Receive Date: 20160408
  Receipt Date: 20160408
  Transmission Date: 20160815
  Serious: Yes (Hospitalization)
  Sender: FDA-Public Use
  Company Number: None

PATIENT
  Age: 73 Year
  Sex: Male

DRUGS (2)
  1. OLD SPICE APDO + BODY SPRAY [Suspect]
     Active Substance: ALUMINUM ZIRCONIUM TRICHLOROHYDREX GLY
     Dosage: 1-3 SWIPES UNDER EACH ARM DAILY TOPICAL
     Route: 061
  2. CREST 3D WHITE WHITESTRIPS DENTAL WHITENING KIT, VERSION UNKNOWN (HYDROGEN PEROXIDE 5.3-14%) STRIP [Suspect]
     Active Substance: HYDROGEN PEROXIDE

REACTIONS (6)
  - Hypoaesthesia [None]
  - Balance disorder [None]
  - Skin burning sensation [None]
  - Dizziness [None]
  - Discomfort [None]
  - Joint swelling [None]

NARRATIVE: CASE EVENT DATE: 201602
